FAERS Safety Report 8026050-4 (Version None)
Quarter: 2012Q1

REPORT INFORMATION
  Report Type: 
  Country: None (occurrence: None)
  Receive Date: 20120105
  Receipt Date: 20110513
  Transmission Date: 20120608
  Serious: No
  Sender: FDA-Public Use
  Company Number: US-ABBOTT-11P-163-0725855-00

PATIENT
  Sex: Female
  Weight: 57.204 kg

DRUGS (2)
  1. SYNTHROID [Suspect]
     Indication: HYPOTHYROIDISM
  2. ELMIRON [Concomitant]
     Indication: CYSTITIS INTERSTITIAL

REACTIONS (5)
  - FEELING COLD [None]
  - ONYCHOCLASIS [None]
  - ACNE CYSTIC [None]
  - FATIGUE [None]
  - PRODUCT QUALITY ISSUE [None]
